FAERS Safety Report 9450146 (Version 1)
Quarter: 2013Q3

REPORT INFORMATION
  Report Type: Spontaneous
  Country: IT (occurrence: FR)
  Receive Date: 20130809
  Receipt Date: 20130809
  Transmission Date: 20140515
  Serious: Yes (Life-Threatening, Hospitalization)
  Sender: FDA-Public Use
  Company Number: FR-FRI-1000047471

PATIENT
  Age: 42 Year
  Sex: Female

DRUGS (2)
  1. NEBIVOLOL [Suspect]
     Indication: HYPERTENSION
     Dosage: 90 DF
     Route: 048
     Dates: start: 20130624, end: 20130624
  2. AXELER [Suspect]
     Indication: HYPERTENSION
     Dosage: 60 DF
     Route: 048
     Dates: start: 20130624, end: 20130624

REACTIONS (3)
  - Vasoplegia syndrome [Recovered/Resolved]
  - Metabolic acidosis [Recovered/Resolved]
  - Overdose [Recovered/Resolved]
